FAERS Safety Report 4485169-5 (Version None)
Quarter: 2004Q4

REPORT INFORMATION
  Report Type: 
  Country: None (occurrence: None)
  Receive Date: 20041026
  Receipt Date: 20040127
  Transmission Date: 20050328
  Serious: No
  Sender: FDA-Public Use
  Company Number: US-BRISTOL-MYERS SQUIBB COMPANY-12488896

PATIENT
  Age: 52 Year
  Sex: Female
  Weight: 95 kg

DRUGS (10)
  1. GLUCOPHAGE XR [Suspect]
     Indication: DIABETES MELLITUS NON-INSULIN-DEPENDENT
     Route: 048
     Dates: start: 20030401, end: 20040116
  2. ZANTAC [Concomitant]
  3. ATENOLOL [Concomitant]
  4. ALTACE [Concomitant]
  5. NORVASC [Concomitant]
  6. PAXIL CR [Concomitant]
  7. LIPITOR [Concomitant]
  8. ROBAXIN [Concomitant]
  9. IMODIUM [Concomitant]
  10. ACETAMINOPHEN W/ PROPOXYPHENE HCL [Concomitant]

REACTIONS (10)
  - AMNESIA [None]
  - ANGER [None]
  - BOWEL SOUNDS ABNORMAL [None]
  - DIARRHOEA [None]
  - DYSGEUSIA [None]
  - HYPERTENSION [None]
  - PARANOIA [None]
  - PAROSMIA [None]
  - RESTLESSNESS [None]
  - WEIGHT DECREASED [None]
